FAERS Safety Report 5793805-6 (Version None)
Quarter: 2008Q2

REPORT INFORMATION
  Report Type: 
  Country: None (occurrence: None)
  Receive Date: 20080627
  Receipt Date: 20080626
  Transmission Date: 20081010
  Serious: Yes (Hospitalization, Disabling)
  Sender: FDA-Public Use
  Company Number: PHHO2006RO15983

PATIENT
  Sex: Female
  Weight: 79 kg

DRUGS (10)
  1. ACLASTA/ZOLEDRONATE T29581+A+SOLINJ+OS [Suspect]
     Indication: OSTEOPOROSIS
     Dosage: 5MG
     Dates: start: 20060317
  2. PREDNISONE [Suspect]
     Dosage: UNK, UNK
  3. METHYLPREDNISOLONE [Suspect]
  4. CALCIUM [Concomitant]
     Indication: OSTEOPOROSIS
     Dosage: 1000 MG, QD
     Route: 048
  5. VITAMIN D [Concomitant]
     Indication: OSTEOPOROSIS
     Dosage: 400-1200 IU, UNK
     Route: 048
  6. METHOTREXATE [Concomitant]
  7. AZATHIOPRINE [Concomitant]
  8. ARAVA [Concomitant]
  9. NOLIPREL [Concomitant]
  10. SYNACTHEN [Concomitant]
     Dosage: 1 MG, QD
     Route: 030
     Dates: start: 20060701, end: 20060710

REACTIONS (6)
  - ARTHRALGIA [None]
  - FURUNCLE [None]
  - JOINT SWELLING [None]
  - OSTEONECROSIS [None]
  - PHYSICAL DISABILITY [None]
  - RHEUMATOID ARTHRITIS [None]
